FAERS Safety Report 5951858-6 (Version None)
Quarter: 2008Q4

REPORT INFORMATION
  Report Type: 
  Country: None (occurrence: None)
  Receive Date: 20081113
  Receipt Date: 20081104
  Transmission Date: 20090506
  Serious: Yes (Hospitalization, Other)
  Sender: FDA-Public Use
  Company Number: US-AMGEN-QUU317454

PATIENT
  Sex: Female

DRUGS (2)
  1. ENBREL [Suspect]
     Indication: PSORIASIS
     Route: 058
     Dates: start: 20060905
  2. ENBREL [Suspect]
     Indication: PSORIATIC ARTHROPATHY

REACTIONS (6)
  - AORTIC ANEURYSM [None]
  - ASTHENIA [None]
  - CARDIAC FAILURE CONGESTIVE [None]
  - HEART RATE INCREASED [None]
  - NAUSEA [None]
  - STENT PLACEMENT [None]
